FAERS Safety Report 6191870-8 (Version None)
Quarter: 2009Q2

REPORT INFORMATION
  Report Type: 
  Country: None (occurrence: None)
  Receive Date: 20090515
  Receipt Date: 20090508
  Transmission Date: 20091009
  Serious: Yes (Death)
  Sender: FDA-Public Use
  Company Number: US-GILEAD-2009-0021858

PATIENT
  Sex: Female
  Weight: 63.56 kg

DRUGS (3)
  1. LETAIRIS [Suspect]
     Indication: PULMONARY ARTERIAL HYPERTENSION
     Route: 048
     Dates: start: 20081210
  2. ASPIRIN [Concomitant]
  3. LOVASTATIN [Concomitant]

REACTIONS (1)
  - DEATH [None]
